FAERS Safety Report 8383835-2 (Version None)
Quarter: 2012Q1

REPORT INFORMATION
  Report Type: 
  Country: None (occurrence: None)
  Receive Date: 20120323
  Receipt Date: 20110307
  Transmission Date: 20120608
  Serious: Yes (Hospitalization)
  Sender: FDA-Public Use
  Company Number: 163-21880-11030778

PATIENT
  Age: 67 Year
  Sex: Male

DRUGS (3)
  1. REVLIMID [Suspect]
     Indication: MULTIPLE MYELOMA
     Dosage: 10 MG, 1 IN 1 D, PO, 25-10MG, DAILY, PO, 25 MG, 1 IN 1 D, PO
     Route: 048
     Dates: start: 20081101, end: 20090101
  2. REVLIMID [Suspect]
     Indication: MULTIPLE MYELOMA
     Dosage: 10 MG, 1 IN 1 D, PO, 25-10MG, DAILY, PO, 25 MG, 1 IN 1 D, PO
     Route: 048
     Dates: start: 20090401, end: 20100101
  3. REVLIMID [Suspect]
     Indication: MULTIPLE MYELOMA
     Dosage: 10 MG, 1 IN 1 D, PO, 25-10MG, DAILY, PO, 25 MG, 1 IN 1 D, PO
     Route: 048
     Dates: start: 20110101

REACTIONS (1)
  - RENAL FAILURE CHRONIC [None]
